FAERS Safety Report 17044056 (Version 4)
Quarter: 2020Q4

REPORT INFORMATION
  Report Type: Report from Study
  Country: JP (occurrence: JP)
  Receive Date: 20191118
  Receipt Date: 20201022
  Transmission Date: 20210113
  Serious: Yes (Hospitalization)
  Sender: FDA-Public Use
  Company Number: JP-EISAI MEDICAL RESEARCH-EC-2019-065427

PATIENT
  Age: 72 Year
  Sex: Female
  Weight: 53 kg

DRUGS (20)
  1. VEGIN [Concomitant]
  2. LENVATINIB [Suspect]
     Active Substance: LENVATINIB
     Route: 048
     Dates: start: 20190802, end: 20191112
  3. EVEROLIMUS. [Suspect]
     Active Substance: EVEROLIMUS
     Dates: start: 20191130
  4. ETIZOLAM [Concomitant]
     Active Substance: ETIZOLAM
  5. IRBESARTAN. [Concomitant]
     Active Substance: IRBESARTAN
  6. THYRADIN S [Concomitant]
     Active Substance: LEVOTHYROXINE SODIUM
  7. LENVATINIB [Suspect]
     Active Substance: LENVATINIB
     Indication: RENAL CELL CARCINOMA
     Route: 048
     Dates: start: 20190524, end: 20190607
  8. EVEROLIMUS. [Suspect]
     Active Substance: EVEROLIMUS
     Indication: RENAL CELL CARCINOMA
     Dates: start: 20190524, end: 20190607
  9. FEBURIC [Concomitant]
     Active Substance: FEBUXOSTAT
  10. LENVATINIB [Suspect]
     Active Substance: LENVATINIB
     Route: 048
     Dates: start: 20191130, end: 20200111
  11. EVEROLIMUS. [Suspect]
     Active Substance: EVEROLIMUS
     Dates: start: 20190802, end: 20191112
  12. MYALONE [Concomitant]
  13. LENVATINIB [Suspect]
     Active Substance: LENVATINIB
     Route: 048
     Dates: start: 20190614, end: 20190714
  14. TRIAMCINOLONE ACETONIDE. [Concomitant]
     Active Substance: TRIAMCINOLONE ACETONIDE
  15. ADALAT CC [Concomitant]
     Active Substance: NIFEDIPINE
  16. AZULENE [Concomitant]
     Active Substance: AZULENE
  17. EVEROLIMUS. [Suspect]
     Active Substance: EVEROLIMUS
     Dates: start: 20190614, end: 20190714
  18. FUROSEMIDE. [Concomitant]
     Active Substance: FUROSEMIDE
  19. CLOBETASOL PROPIONATE. [Concomitant]
     Active Substance: CLOBETASOL PROPIONATE
  20. DRENISON [Concomitant]
     Active Substance: FLURANDRENOLIDE

REACTIONS (2)
  - Proteinuria [Recovered/Resolved]
  - Cholecystitis [Recovered/Resolved]

NARRATIVE: CASE EVENT DATE: 20191112
